FAERS Safety Report 12171413 (Version 1)
Quarter: 2016Q1

REPORT INFORMATION
  Report Type: Spontaneous
  Country: US (occurrence: None)
  Receive Date: 20160310
  Receipt Date: 20160310
  Transmission Date: 20160526
  Serious: Yes (Hospitalization)
  Sender: FDA-Public Use
  Company Number: None

PATIENT
  Sex: Male
  Weight: 86.2 kg

DRUGS (20)
  1. VITAMIN D3 [Concomitant]
     Active Substance: CHOLECALCIFEROL
  2. CIPRO [Concomitant]
     Active Substance: CIPROFLOXACIN HYDROCHLORIDE
  3. LASIX [Concomitant]
     Active Substance: FUROSEMIDE
  4. FLUTICASONE [Concomitant]
     Active Substance: FLUTICASONE\FLUTICASONE PROPIONATE
  5. LITHIUM. [Concomitant]
     Active Substance: LITHIUM
  6. PREDNISONE. [Concomitant]
     Active Substance: PREDNISONE
  7. NYSTATIN. [Concomitant]
     Active Substance: NYSTATIN
  8. LOTRIMIN [Concomitant]
     Active Substance: CLOTRIMAZOLE
  9. HARVONI [Suspect]
     Active Substance: LEDIPASVIR\SOFOSBUVIR
     Indication: HEPATITIS C
     Dosage: 400/90 MG X1/DAY PO
     Route: 048
     Dates: start: 20150528, end: 20151111
  10. EVEROLIMUS [Concomitant]
     Active Substance: EVEROLIMUS
  11. CARVEDILOL. [Concomitant]
     Active Substance: CARVEDILOL
  12. VITAMIN B12 [Concomitant]
     Active Substance: CYANOCOBALAMIN
  13. LAMIVUDINE. [Concomitant]
     Active Substance: LAMIVUDINE
  14. AMLODIPINE [Concomitant]
     Active Substance: AMLODIPINE BESYLATE
  15. URSODIOL. [Concomitant]
     Active Substance: URSODIOL
  16. MULTIVITAMIN [Concomitant]
     Active Substance: VITAMINS
  17. MYCOPHENOLATE [Concomitant]
     Active Substance: MYCOPHENOLIC ACID
  18. ZYPREXA [Concomitant]
     Active Substance: OLANZAPINE
  19. ALBUTEROL. [Concomitant]
     Active Substance: ALBUTEROL
  20. EPIVIR [Concomitant]
     Active Substance: LAMIVUDINE

REACTIONS (8)
  - Influenza like illness [None]
  - Headache [None]
  - Cholangitis [None]
  - Bile duct stenosis [None]
  - Blood culture positive [None]
  - Enterococcal infection [None]
  - Myalgia [None]
  - Sepsis [None]

NARRATIVE: CASE EVENT DATE: 20150912
